FAERS Safety Report 8850271 (Version 7)
Quarter: 2013Q3

REPORT INFORMATION
  Report Type: Spontaneous
  Country: BR (occurrence: BR)
  Receive Date: 20121019
  Receipt Date: 20130830
  Transmission Date: 20140515
  Serious: Yes (Life-Threatening, Other)
  Sender: FDA-Public Use
  Company Number: BR-ROCHE-1147002

PATIENT
  Age: 72 Year
  Sex: Male
  Weight: 80 kg

DRUGS (5)
  1. MABTHERA [Suspect]
     Indication: CHRONIC LYMPHOCYTIC LEUKAEMIA
     Route: 042
  2. MABTHERA [Suspect]
     Route: 065
     Dates: start: 20121010
  3. PLAVIX [Concomitant]
     Route: 065
  4. LIPITOR [Concomitant]
     Route: 065
  5. SELOKEN [Concomitant]
     Route: 065

REACTIONS (3)
  - Cardio-respiratory arrest [Recovered/Resolved]
  - Angina unstable [Unknown]
  - Chest pain [Unknown]
